FAERS Safety Report 4892374-2 (Version None)
Quarter: 2006Q1

REPORT INFORMATION
  Report Type: 
  Country: None (occurrence: None)
  Receive Date: 20060126
  Receipt Date: 20050426
  Transmission Date: 20060701
  Serious: Yes (Hospitalization, Other)
  Sender: FDA-Public Use
  Company Number: US-MERCK-0504USA04982

PATIENT
  Age: 54 Year
  Sex: Male
  Weight: 102 kg

DRUGS (4)
  1. VIOXX [Suspect]
     Indication: MONARTHRITIS
     Route: 048
     Dates: start: 19991101, end: 20030101
  2. VIOXX [Suspect]
     Route: 048
     Dates: start: 19991101, end: 20030101
  3. ASPIRIN [Concomitant]
     Indication: HEADACHE
     Route: 065
  4. VITAMINS (UNSPECIFIED) [Concomitant]
     Route: 065

REACTIONS (4)
  - ARTHROPATHY [None]
  - CARDIOVASCULAR DISORDER [None]
  - HIP ARTHROPLASTY [None]
  - MYOCARDIAL INFARCTION [None]
